FAERS Safety Report 20957771 (Version 2)
Quarter: 2022Q3

REPORT INFORMATION
  Report Type: Spontaneous
  Country: US (occurrence: US)
  Receive Date: 20220614
  Receipt Date: 20220706
  Transmission Date: 20221026
  Serious: Yes (Other)
  Sender: FDA-Public Use
  Company Number: US-AMGEN-USASP2022097725

PATIENT
  Age: 73 Year
  Sex: Female

DRUGS (2)
  1. ENBREL [Suspect]
     Active Substance: ETANERCEPT
     Indication: Rheumatoid arthritis
     Dosage: 50 MG, WEEKLY
     Route: 058
     Dates: end: 202009
  2. METHOTREXATE [Suspect]
     Active Substance: METHOTREXATE
     Dosage: UNK
     Route: 065

REACTIONS (10)
  - Gastric cancer [Not Recovered/Not Resolved]
  - Fall [Unknown]
  - Facial bones fracture [Unknown]
  - Hand fracture [Unknown]
  - Wrist fracture [Unknown]
  - Sinus disorder [Unknown]
  - Head injury [Unknown]
  - Loose tooth [Unknown]
  - Blood pressure abnormal [Unknown]
  - Cognitive disorder [Not Recovered/Not Resolved]
